FAERS Safety Report 16456733 (Version 1)
Quarter: 2019Q3

REPORT INFORMATION
  Report Type: Spontaneous
  Country: US (occurrence: US)
  Receive Date: 20190619
  Receipt Date: 20190619
  Transmission Date: 20191004
  Serious: Yes (Disabling)
  Sender: FDA-Public Use
  Company Number: None

PATIENT
  Age: 77 Year
  Sex: Male
  Weight: 105.75 kg

DRUGS (2)
  1. FLUOROURACIL TOPICAL CREAM USP,5%- GENERIC FOR EFUDEX, I BELIEVE [Suspect]
     Active Substance: FLUOROURACIL
     Indication: SKIN CANCER
     Dosage: ?          QUANTITY:1 1`;?
     Route: 061
     Dates: start: 20180905, end: 20180927
  2. KNEE BRACE [Concomitant]

REACTIONS (1)
  - Dermatomyositis [None]

NARRATIVE: CASE EVENT DATE: 20180817
